FAERS Safety Report 15886016 (Version 4)
Quarter: 2020Q3

REPORT INFORMATION
  Report Type: Report from Study
  Country: CN (occurrence: CN)
  Receive Date: 20190129
  Receipt Date: 20200721
  Transmission Date: 20201102
  Serious: Yes (Hospitalization)
  Sender: FDA-Public Use
  Company Number: CN-TAKEDA-2019TUS001897

PATIENT
  Age: 25 Year
  Sex: Female
  Weight: 45.5 kg

DRUGS (3)
  1. POLYFEROSE [Concomitant]
     Active Substance: IRON
     Indication: ANAEMIA
     Dosage: 0.15 GRAM, QD
     Route: 048
     Dates: start: 20191115
  2. ENSURE [Concomitant]
     Active Substance: AMINO ACIDS\DEXTROSE\ELECTROLYTES NOS\SOYBEAN OIL\VITAMINS
     Indication: CROHN^S DISEASE
     Dosage: 50 GRAM, TID
     Route: 048
     Dates: start: 20180515
  3. VEDOLIZUMAB [Suspect]
     Active Substance: VEDOLIZUMAB
     Indication: CROHN^S DISEASE
     Dosage: UNK
     Route: 042
     Dates: start: 20180910

REACTIONS (1)
  - Anal fistula [Recovered/Resolved]

NARRATIVE: CASE EVENT DATE: 20190115
